FAERS Safety Report 13896752 (Version 1)
Quarter: 2017Q3

REPORT INFORMATION
  Report Type: Report from Study
  Country: US (occurrence: US)
  Receive Date: 20170823
  Receipt Date: 20170823
  Transmission Date: 20171127
  Serious: Yes (Other)
  Sender: FDA-Public Use
  Company Number: US-JNJFOC-20170818964

PATIENT
  Sex: Female
  Weight: 59.88 kg

DRUGS (20)
  1. AROMASIN [Concomitant]
     Active Substance: EXEMESTANE
     Indication: BREAST CANCER
     Route: 048
     Dates: start: 2012
  2. HYDROXINE [Concomitant]
     Active Substance: HYDROXYZINE HYDROCHLORIDE
     Indication: PRURITUS
     Route: 048
  3. SIMVASTATIN. [Concomitant]
     Active Substance: SIMVASTATIN
     Indication: BLOOD CHOLESTEROL INCREASED
     Route: 048
  4. VITAMIN D3 [Concomitant]
     Active Substance: CHOLECALCIFEROL
     Indication: VITAMIN D DECREASED
     Dosage: 2000UNITS
     Route: 048
     Dates: start: 2013
  5. ASPIRIN. [Concomitant]
     Active Substance: ASPIRIN
     Indication: ANGINA PECTORIS
     Route: 048
     Dates: start: 2006
  6. DALIRESP [Concomitant]
     Active Substance: ROFLUMILAST
     Indication: CHRONIC OBSTRUCTIVE PULMONARY DISEASE
     Route: 048
     Dates: start: 2014
  7. METFORMIN [Concomitant]
     Active Substance: METFORMIN HYDROCHLORIDE
     Indication: TYPE 2 DIABETES MELLITUS
     Route: 048
  8. METOPROLOL. [Concomitant]
     Active Substance: METOPROLOL
     Indication: BLOOD CHOLESTEROL
     Route: 048
     Dates: start: 2006
  9. STELARA [Suspect]
     Active Substance: USTEKINUMAB
     Indication: PSORIASIS
     Route: 058
     Dates: start: 201707
  10. PRILOSEC [Concomitant]
     Active Substance: OMEPRAZOLE MAGNESIUM
     Indication: GASTROOESOPHAGEAL REFLUX DISEASE
     Route: 048
     Dates: start: 2011
  11. PROLIA [Concomitant]
     Active Substance: DENOSUMAB
     Indication: OSTEOPENIA
     Route: 050
     Dates: start: 2013
  12. TRIAMTERENE. [Concomitant]
     Active Substance: TRIAMTERENE
     Route: 048
     Dates: start: 2011
  13. FLUTICASONE W/SALMETEROL [Concomitant]
     Active Substance: FLUTICASONE PROPIONATE\SALMETEROL XINAFOATE
     Indication: CHRONIC OBSTRUCTIVE PULMONARY DISEASE
     Route: 055
  14. VENTOLIN [Concomitant]
     Active Substance: ALBUTEROL SULFATE
     Indication: CHRONIC OBSTRUCTIVE PULMONARY DISEASE
     Route: 055
  15. FLUTICASONE. [Concomitant]
     Active Substance: FLUTICASONE
     Indication: FUNGAL SKIN INFECTION
     Route: 061
  16. POTASSIUM [Concomitant]
     Active Substance: POTASSIUM
     Indication: MUSCLE SPASMS
     Route: 048
     Dates: start: 2016
  17. SPIRIVA [Concomitant]
     Active Substance: TIOTROPIUM BROMIDE MONOHYDRATE
     Indication: CHRONIC OBSTRUCTIVE PULMONARY DISEASE
     Route: 055
     Dates: start: 2011
  18. TRAMADOL. [Concomitant]
     Active Substance: TRAMADOL
     Dosage: 2 TABLETS, ONCE A DAY
     Route: 048
  19. ALBUTEROL. [Concomitant]
     Active Substance: ALBUTEROL
     Indication: CHRONIC OBSTRUCTIVE PULMONARY DISEASE
     Route: 065
  20. RESTASIS [Concomitant]
     Active Substance: CYCLOSPORINE
     Indication: DRY EYE
     Dosage: 1 DROP/ SOLUTION/ -/ EVERY 12 HOURS/ BOTH EYES
     Route: 047
     Dates: start: 2015

REACTIONS (1)
  - Cholelithiasis [Not Recovered/Not Resolved]

NARRATIVE: CASE EVENT DATE: 2017
